FAERS Safety Report 16766261 (Version 1)
Quarter: 2019Q3

REPORT INFORMATION
  Report Type: Spontaneous
  Country: US (occurrence: US)
  Receive Date: 20190903
  Receipt Date: 20190903
  Transmission Date: 20191005
  Serious: Yes (Hospitalization)
  Sender: FDA-Public Use
  Company Number: US-PFIZER INC-2019371701

PATIENT
  Age: 65 Year
  Sex: Female
  Weight: 49.89 kg

DRUGS (2)
  1. NORTRIPTYLINE [Concomitant]
     Active Substance: NORTRIPTYLINE
     Indication: MIGRAINE
     Dosage: 75 MG, 1X/DAY
  2. RELPAX [Suspect]
     Active Substance: ELETRIPTAN HYDROBROMIDE
     Indication: MIGRAINE
     Dosage: 40 MG, 1X/DAY
     Route: 048

REACTIONS (5)
  - Colitis ulcerative [Unknown]
  - Abdominal pain [Unknown]
  - Haemorrhage [Unknown]
  - Frustration tolerance decreased [Unknown]
  - Pain [Recovered/Resolved]
